FAERS Safety Report 20200449 (Version 2)
Quarter: 2022Q1

REPORT INFORMATION
  Report Type: Spontaneous
  Country: US (occurrence: US)
  Receive Date: 20211217
  Receipt Date: 20220322
  Transmission Date: 20220424
  Serious: No
  Sender: FDA-Public Use
  Company Number: US-NOVOPROD-866179

PATIENT
  Sex: Male

DRUGS (2)
  1. WEGOVY [Suspect]
     Active Substance: SEMAGLUTIDE
     Indication: Product used for unknown indication
     Dosage: 0.25 MG
     Route: 058
  2. WEGOVY [Suspect]
     Active Substance: SEMAGLUTIDE
     Dosage: 2.4 MG
     Route: 058

REACTIONS (5)
  - Abdominal pain upper [Unknown]
  - Headache [Unknown]
  - Constipation [Unknown]
  - Fatigue [Unknown]
  - Nausea [Unknown]
